APPROVED DRUG PRODUCT: BUTALBITAL AND ACETAMINOPHEN
Active Ingredient: ACETAMINOPHEN; BUTALBITAL
Strength: 300MG;50MG
Dosage Form/Route: TABLET;ORAL
Application: A207635 | Product #001
Applicant: ALVOGEN INC
Approved: Jun 5, 2017 | RLD: No | RS: No | Type: DISCN